FAERS Safety Report 7968040-3 (Version None)
Quarter: 2011Q4

REPORT INFORMATION
  Report Type: 
  Country: None (occurrence: None)
  Receive Date: 20111209
  Receipt Date: 20111206
  Transmission Date: 20120403
  Serious: Yes (Other)
  Sender: FDA-Public Use
  Company Number: US-ACTELION-A-US2011-57815

PATIENT

DRUGS (1)
  1. EPOPROSTENOL SODIUM [Suspect]
     Indication: PULMONARY ARTERIAL HYPERTENSION
     Dosage: 11.5 NG/KG, PER MIN
     Route: 042
     Dates: start: 20110929

REACTIONS (3)
  - PELVIC FRACTURE [None]
  - SPINAL COMPRESSION FRACTURE [None]
  - FALL [None]
